FAERS Safety Report 20599334 (Version 2)
Quarter: 2022Q1

REPORT INFORMATION
  Report Type: Report from Study
  Country: FR (occurrence: FR)
  Receive Date: 20220315
  Receipt Date: 20220319
  Transmission Date: 20220423
  Serious: Yes (Death, Other)
  Sender: FDA-Public Use
  Company Number: FR-MYLANLABS-2018M1094657

PATIENT

DRUGS (2)
  1. PREDNISONE [Suspect]
     Active Substance: PREDNISONE
     Indication: Nephrotic syndrome
     Dosage: SCHEDULED TO RECEIVE FOR 24 WEEKS)
     Route: 048
  2. MYCOPHENOLATE SODIUM [Concomitant]
     Active Substance: MYCOPHENOLATE SODIUM
     Indication: Nephrotic syndrome
     Dosage: 720 MILLIGRAM (SCHEDULED TO RECEIVE FOR 24 WEEKS)
     Route: 065

REACTIONS (1)
  - Septic shock [Fatal]
